FAERS Safety Report 6778876-2 (Version None)
Quarter: 2010Q2

REPORT INFORMATION
  Report Type: 
  Country: None (occurrence: None)
  Receive Date: 20100618
  Receipt Date: 20100518
  Transmission Date: 20101027
  Serious: No
  Sender: FDA-Public Use
  Company Number: US-BAYER-201015762BCC

PATIENT
  Age: 79 Year
  Sex: Female

DRUGS (5)
  1. ALEVE (CAPLET) [Suspect]
     Indication: ARTHRALGIA
     Dosage: TOTAL DAILY DOSE: 880 MG  UNIT DOSE: 220 MG
     Route: 048
     Dates: start: 20100501, end: 20100501
  2. ALEVE (CAPLET) [Suspect]
     Dosage: TOTAL DAILY DOSE: 1320 MG  UNIT DOSE: 220 MG
     Route: 048
     Dates: start: 20100501
  3. BENICAR [Concomitant]
     Route: 065
  4. CODEINE SULFATE [Concomitant]
     Route: 065
  5. NORVEST [Concomitant]
     Route: 065

REACTIONS (1)
  - ARTHRALGIA [None]
